FAERS Safety Report 5712140-5 (Version None)
Quarter: 2008Q2

REPORT INFORMATION
  Report Type: 
  Country: None (occurrence: None)
  Receive Date: 20080421
  Receipt Date: 20080421
  Transmission Date: 20081010
  Serious: No
  Sender: FDA-Public Use
  Company Number: None

PATIENT
  Sex: Male
  Weight: 108.8633 kg

DRUGS (1)
  1. RITE AIDE WHITENING RITE AID CORPORATION [Suspect]
     Indication: DENTAL DISORDER PROPHYLAXIS
     Dosage: 15ML TWICE DAILY PO
     Route: 048
     Dates: start: 20080417, end: 20080419

REACTIONS (1)
  - AGEUSIA [None]
